FAERS Safety Report 22045426 (Version 5)
Quarter: 2023Q2

REPORT INFORMATION
  Report Type: Spontaneous
  Country: IN (occurrence: IN)
  Receive Date: 20230228
  Receipt Date: 20230622
  Transmission Date: 20230721
  Serious: Yes (Hospitalization, Other)
  Sender: FDA-Public Use
  Company Number: IN-PFIZER INC-PV202200126094

PATIENT
  Age: 55 Year
  Sex: Female

DRUGS (8)
  1. PALBOCICLIB [Suspect]
     Active Substance: PALBOCICLIB
     Dosage: 125 MG, CYCLIC (1X/DAY [1-0-0] X 21 DAYS ON AND 7 DAYS OFF)
     Route: 048
     Dates: start: 20220531, end: 20221019
  2. PALBOCICLIB [Suspect]
     Active Substance: PALBOCICLIB
     Dosage: 100 MG, CYCLIC (1X/DAY [1-0-0] X 21 DAYS ON AND 7 DAYS OFF)
     Route: 048
     Dates: start: 2022
  3. LETROZOLE [Concomitant]
     Active Substance: LETROZOLE
     Dosage: 2.5 MG, 1X/DAY (1-0-0 X 30 DAYS)
  4. LETROZOLE [Concomitant]
     Active Substance: LETROZOLE
     Dosage: 2.5 MG, 1X/DAY (1-0-0 X 2 MTH)
  5. CCM [Concomitant]
     Dosage: UNK, 1X/DAY (0-1-0 X 30 DAYS)
  6. CCM [Concomitant]
     Dosage: UNK, 1X/DAY (0-1-0 X 2 MONTH)
  7. FERROUS FUMARATE\FOLIC ACID\ZINC SULFATE [Concomitant]
     Active Substance: FERROUS FUMARATE\FOLIC ACID\ZINC SULFATE
     Dosage: UNK, 1X/DAY (0-0-1 X 1 MONTH)
  8. FERROUS FUMARATE\FOLIC ACID\ZINC SULFATE [Concomitant]
     Active Substance: FERROUS FUMARATE\FOLIC ACID\ZINC SULFATE
     Dosage: UNK, 1X/DAY (0-0-1 X 2 MONTH)

REACTIONS (13)
  - Ovarian operation [Unknown]
  - Blood pressure systolic increased [Unknown]
  - Mastectomy [Unknown]
  - Blood pressure abnormal [Unknown]
  - Full blood count decreased [Unknown]
  - Carbohydrate antigen 125 increased [Not Recovered/Not Resolved]
  - Anaemia [Recovering/Resolving]
  - Heart rate increased [Recovered/Resolved]
  - White blood cell count decreased [Not Recovered/Not Resolved]
  - Oxygen saturation decreased [Recovered/Resolved]
  - Respiratory rate increased [Unknown]
  - Haemoglobin decreased [Unknown]
  - Blood pressure increased [Unknown]

NARRATIVE: CASE EVENT DATE: 20220101
